FAERS Safety Report 6590609-1 (Version None)
Quarter: 2010Q1

REPORT INFORMATION
  Report Type: 
  Country: None (occurrence: None)
  Receive Date: 20100219
  Receipt Date: 20100216
  Transmission Date: 20100710
  Serious: Yes (Other)
  Sender: FDA-Public Use
  Company Number: A0814046A

PATIENT
  Sex: Female
  Weight: 73 kg

DRUGS (2)
  1. TYKERB [Suspect]
     Dosage: 1250MG PER DAY
     Route: 048
     Dates: start: 20091023, end: 20100131
  2. XELODA [Concomitant]
     Route: 065
     Dates: end: 20100201

REACTIONS (5)
  - CONJUNCTIVITIS [None]
  - DIARRHOEA [None]
  - FATIGUE [None]
  - PALMAR-PLANTAR ERYTHRODYSAESTHESIA SYNDROME [None]
  - QUALITY OF LIFE DECREASED [None]
